FAERS Safety Report 21022466 (Version 1)
Quarter: 2022Q2

REPORT INFORMATION
  Report Type: Spontaneous
  Country: JP (occurrence: JP)
  Receive Date: 20220629
  Receipt Date: 20220629
  Transmission Date: 20220721
  Serious: No
  Sender: FDA-Public Use
  Company Number: JP-PFIZER INC-202200840564

PATIENT

DRUGS (1)
  1. ENBREL [Suspect]
     Active Substance: ETANERCEPT
     Dosage: UNK

REACTIONS (4)
  - Injury associated with device [Unknown]
  - Device use error [Unknown]
  - Occupational exposure to product [Unknown]
  - Accidental exposure to product [Unknown]
